FAERS Safety Report 17353907 (Version 1)
Quarter: 2020Q1

REPORT INFORMATION
  Report Type: Spontaneous
  Country: FR (occurrence: FR)
  Receive Date: 20200131
  Receipt Date: 20200131
  Transmission Date: 20200409
  Serious: Yes (Death)
  Sender: FDA-Public Use
  Company Number: FR-TEVA-2020-FR-1177738

PATIENT
  Age: 87 Year
  Sex: Male
  Weight: 93 kg

DRUGS (2)
  1. SOTALOL (CHLORHYDRATE DE) [Suspect]
     Active Substance: SOTALOL
     Indication: SUPRAVENTRICULAR TACHYCARDIA
     Dosage: 80 MG
     Route: 048
     Dates: start: 2014, end: 20191211
  2. PLAQUENIL [Interacting]
     Active Substance: HYDROXYCHLOROQUINE SULFATE
     Indication: CHRONIC CUTANEOUS LUPUS ERYTHEMATOSUS
     Route: 048
     Dates: start: 20170309, end: 20191211

REACTIONS (3)
  - Cardio-respiratory arrest [Fatal]
  - Electrocardiogram QT prolonged [Fatal]
  - Drug interaction [Unknown]

NARRATIVE: CASE EVENT DATE: 20191211
